FAERS Safety Report 6763218-9 (Version None)
Quarter: 2010Q2

REPORT INFORMATION
  Report Type: 
  Country: None (occurrence: None)
  Receive Date: 20100609
  Receipt Date: 20100602
  Transmission Date: 20101027
  Serious: Yes (Other)
  Sender: FDA-Public Use
  Company Number: US-AMGEN-QUU415925

PATIENT
  Sex: Male

DRUGS (4)
  1. NPLATE [Suspect]
     Indication: IDIOPATHIC THROMBOCYTOPENIC PURPURA
     Dates: start: 20090519, end: 20100301
  2. CORTICOSTEROIDS [Concomitant]
     Dates: start: 20070521, end: 20070820
  3. IMMU-G [Concomitant]
     Route: 042
     Dates: start: 20070820
  4. RITUXIMAB [Concomitant]
     Dates: start: 20080207, end: 20080313

REACTIONS (2)
  - REFUSAL OF TREATMENT BY PATIENT [None]
  - THROMBOCYTOPENIA [None]
